FAERS Safety Report 25664664 (Version 1)
Quarter: 2025Q3

REPORT INFORMATION
  Report Type: Spontaneous
  Country: US (occurrence: None)
  Receive Date: 20250808
  Receipt Date: 20250808
  Transmission Date: 20251021
  Serious: Yes (Life-Threatening, Hospitalization, Other)
  Sender: FDA-CTU
  Company Number: None

PATIENT
  Age: 83 Year
  Sex: Male
  Weight: 72.3 kg

DRUGS (1)
  1. MONOFERRIC [Suspect]
     Active Substance: FERRIC DERISOMALTOSE
     Indication: Iron deficiency anaemia
     Route: 042

REACTIONS (10)
  - Pneumonia aspiration [None]
  - Bradycardia [None]
  - Anaphylactic reaction [None]
  - Hyperhidrosis [None]
  - Pain [None]
  - Acute respiratory failure [None]
  - Nausea [None]
  - Hypotension [None]
  - Unresponsive to stimuli [None]
  - Oropharyngeal swelling [None]

NARRATIVE: CASE EVENT DATE: 20250807
